FAERS Safety Report 20768780 (Version 1)
Quarter: 2022Q2

REPORT INFORMATION
  Report Type: Spontaneous
  Country: US (occurrence: None)
  Receive Date: 20220428
  Receipt Date: 20220428
  Transmission Date: 20220721
  Serious: Yes (Other)
  Sender: FDA-Public Use
  Company Number: None

PATIENT
  Age: 70 Year
  Sex: Female
  Weight: 64.2 kg

DRUGS (1)
  1. REVLIMID [Suspect]
     Active Substance: LENALIDOMIDE
     Indication: Plasma cell myeloma
     Dosage: FREQUENCY : DAILY; X21 DAYS?
     Route: 048
     Dates: start: 2022, end: 20220414

REACTIONS (2)
  - Diverticulitis [None]
  - Therapy interrupted [None]

NARRATIVE: CASE EVENT DATE: 20220414
